FAERS Safety Report 24416617 (Version 1)
Quarter: 2024Q4

REPORT INFORMATION
  Report Type: Spontaneous
  Country: US (occurrence: US)
  Receive Date: 20241009
  Receipt Date: 20241009
  Transmission Date: 20250115
  Serious: Yes (Hospitalization)
  Sender: PFIZER
  Company Number: US-PFIZER INC-2015067899

PATIENT
  Age: 55 Year
  Sex: Male

DRUGS (3)
  1. TIGECYCLINE [Interacting]
     Active Substance: TIGECYCLINE
     Indication: Osteomyelitis
     Dosage: UNK
  2. INSULIN ASPART [Interacting]
     Active Substance: INSULIN ASPART
     Indication: Type 1 diabetes mellitus
     Dosage: 8 UNITS PREMEAL WITH CORRECTION SCALE
  3. INSULIN GLARGINE [Interacting]
     Active Substance: INSULIN GLARGINE
     Indication: Type 1 diabetes mellitus
     Dosage: 30 UNITS IN THE MORNING (QAM)

REACTIONS (2)
  - Potentiating drug interaction [Recovered/Resolved]
  - Hypoglycaemia [Recovered/Resolved]
